FAERS Safety Report 7500156-8 (Version None)
Quarter: 2011Q2

REPORT INFORMATION
  Report Type: 
  Country: None (occurrence: None)
  Receive Date: 20110524
  Receipt Date: 20100406
  Transmission Date: 20111010
  Serious: No
  Sender: FDA-Public Use
  Company Number: US-NOVEN-ALL1-2010-02107

PATIENT

DRUGS (3)
  1. DAYTRANA [Suspect]
     Dosage: 20 MG, UNKNOWN
     Route: 062
  2. DAYTRANA [Suspect]
     Dosage: 10 MG, UNKNOWN
     Route: 062
  3. DAYTRANA [Suspect]
     Dosage: CUTTING UNKNOWN MG. PATCH AND APPLYING 1/2
     Route: 062

REACTIONS (3)
  - DRUG ADMINISTERED AT INAPPROPRIATE SITE [None]
  - WRONG TECHNIQUE IN DRUG USAGE PROCESS [None]
  - NO ADVERSE EVENT [None]
